FAERS Safety Report 16755684 (Version 2)
Quarter: 2019Q3

REPORT INFORMATION
  Report Type: Spontaneous
  Country: US (occurrence: US)
  Receive Date: 20190829
  Receipt Date: 20190927
  Transmission Date: 20191005
  Serious: Yes (Other)
  Sender: FDA-Public Use
  Company Number: US-BAUSCH-BL-2019-024344

PATIENT
  Age: 73 Year
  Sex: Female
  Weight: 64.47 kg

DRUGS (5)
  1. SYNTHROID [Concomitant]
     Active Substance: LEVOTHYROXINE SODIUM
     Indication: PRODUCT USED FOR UNKNOWN INDICATION
     Route: 048
  2. VITAMIN D3 [Concomitant]
     Active Substance: CHOLECALCIFEROL
     Indication: PRODUCT USED FOR UNKNOWN INDICATION
     Route: 048
  3. XIFAXAN [Suspect]
     Active Substance: RIFAXIMIN
     Indication: GASTROINTESTINAL BACTERIAL OVERGROWTH
     Dosage: TOOK ONLY ONE DOSE OF SUSPECT
     Route: 048
     Dates: start: 201908, end: 201908
  4. XIFAXAN [Suspect]
     Active Substance: RIFAXIMIN
     Indication: PANCREATITIS CHRONIC
  5. XIFAXAN [Suspect]
     Active Substance: RIFAXIMIN
     Indication: PRODUCT USE IN UNAPPROVED INDICATION

REACTIONS (11)
  - Swollen tongue [Unknown]
  - Product use in unapproved indication [Unknown]
  - Product dispensing error [Unknown]
  - Dyspnoea [Unknown]
  - Chest pain [Unknown]
  - Pruritus [Recovered/Resolved]
  - Oral discomfort [Recovered/Resolved]
  - Lip pruritus [Recovered/Resolved]
  - Skin burning sensation [Recovered/Resolved]
  - Tongue discomfort [Recovered/Resolved]
  - Tongue pruritus [Recovered/Resolved]

NARRATIVE: CASE EVENT DATE: 201908
